FAERS Safety Report 19579943 (Version 1)
Quarter: 2021Q3

REPORT INFORMATION
  Report Type: Spontaneous
  Country: PL (occurrence: PL)
  Receive Date: 20210719
  Receipt Date: 20210719
  Transmission Date: 20211014
  Serious: Yes (Death, Other)
  Sender: FDA-Public Use
  Company Number: PL-BAUSCH-BL-2021-025144

PATIENT
  Age: 62 Year
  Sex: Male

DRUGS (2)
  1. CARFILZOMIB [Suspect]
     Active Substance: CARFILZOMIB
     Indication: PLASMA CELL MYELOMA
     Route: 065
     Dates: start: 20200123
  2. DEXAMETHASONE. [Suspect]
     Active Substance: DEXAMETHASONE
     Indication: PLASMA CELL MYELOMA
     Route: 065
     Dates: start: 20200123

REACTIONS (6)
  - Tuberculosis [Unknown]
  - COVID-19 pneumonia [Unknown]
  - Upper respiratory tract infection [Unknown]
  - Death [Fatal]
  - Sepsis [Unknown]
  - Fungal infection [Unknown]

NARRATIVE: CASE EVENT DATE: 2021
